FAERS Safety Report 6492575-6 (Version None)
Quarter: 2009Q4

REPORT INFORMATION
  Report Type: 
  Country: None (occurrence: None)
  Receive Date: 20091214
  Receipt Date: 20091202
  Transmission Date: 20100525
  Serious: Yes (Other)
  Sender: FDA-Public Use
  Company Number: JP-BRISTOL-MYERS SQUIBB COMPANY-14879159

PATIENT
  Age: 62 Year
  Sex: Male

DRUGS (1)
  1. MITOMYCIN [Suspect]
     Dosage: USED FOR 3 TO 6 MONTHS
     Route: 031

REACTIONS (2)
  - KERATOMALACIA [None]
  - SCLEROMALACIA [None]
